FAERS Safety Report 8361793-4 (Version None)
Quarter: 2012Q2

REPORT INFORMATION
  Report Type: 
  Country: None (occurrence: None)
  Receive Date: 20120515
  Receipt Date: 20120508
  Transmission Date: 20120825
  Serious: Yes (Other)
  Sender: FDA-Public Use
  Company Number: US-GLAXOSMITHKLINE-A0976816A

PATIENT
  Age: 49 Year
  Sex: Female

DRUGS (6)
  1. DEPAKOTE [Concomitant]
  2. VITAMIN TAB [Concomitant]
  3. LAMICTAL [Suspect]
     Indication: CONVULSION
     Dosage: 100MG TWICE PER DAY
     Route: 048
  4. CELEXA [Concomitant]
  5. HERBAL MEDICATION [Concomitant]
  6. KEPPRA [Concomitant]

REACTIONS (3)
  - CONVULSION [None]
  - DEPRESSION [None]
  - STRESS [None]
